FAERS Safety Report 25356688 (Version 1)
Quarter: 2025Q2

REPORT INFORMATION
  Report Type: Report from Study
  Country: CA (occurrence: CA)
  Receive Date: 20250526
  Receipt Date: 20250526
  Transmission Date: 20250717
  Serious: Yes (Hospitalization, Other)
  Sender: CSL BEHRING
  Company Number: CA-BEH-2024182222

PATIENT
  Age: 70 Year
  Sex: Female
  Weight: 70.6 kg

DRUGS (4)
  1. HIZENTRA [Suspect]
     Active Substance: HUMAN IMMUNOGLOBULIN G
     Indication: Secondary immunodeficiency
     Dosage: 10 G, QW
     Route: 065
     Dates: start: 20240911
  2. HIZENTRA [Suspect]
     Active Substance: HUMAN IMMUNOGLOBULIN G
     Dosage: 10 G, QW
     Route: 058
     Dates: start: 20240911
  3. HIZENTRA [Suspect]
     Active Substance: HUMAN IMMUNOGLOBULIN G
     Dosage: 10 G, QW
     Route: 065
     Dates: start: 20240911
  4. HIZENTRA [Suspect]
     Active Substance: HUMAN IMMUNOGLOBULIN G
     Dosage: 10 G, QW
     Route: 065
     Dates: start: 20240911

REACTIONS (24)
  - Near death experience [Unknown]
  - Pneumonia viral [Unknown]
  - Blood pressure decreased [Unknown]
  - Pyrexia [Unknown]
  - Illness [Unknown]
  - Therapy interrupted [Unknown]
  - Fatigue [Unknown]
  - Fear of injection [Unknown]
  - Fatigue [Unknown]
  - Fatigue [Not Recovered/Not Resolved]
  - Confusional state [Not Recovered/Not Resolved]
  - Arthritis [Unknown]
  - Drug intolerance [Unknown]
  - Malaise [Unknown]
  - Confusional state [Unknown]
  - Crying [Unknown]
  - Asthenia [Unknown]
  - Brain fog [Unknown]
  - Memory impairment [Unknown]
  - Arthritis [Unknown]
  - Wrong technique in product usage process [Unknown]
  - Incorrect product administration duration [Unknown]
  - Product use complaint [Unknown]
  - Product use issue [Unknown]

NARRATIVE: CASE EVENT DATE: 20240101
